FAERS Safety Report 21793404 (Version 1)
Quarter: 2022Q4

REPORT INFORMATION
  Report Type: Other
  Country: IN (occurrence: None)
  Receive Date: 20221229
  Receipt Date: 20221229
  Transmission Date: 20230112
  Serious: Yes (Other)
  Sender: FDA-Public Use
  Company Number: IN-ROCHE-2819632

PATIENT
  Age: 59 Year
  Sex: Male

DRUGS (1)
  1. ALECENSA [Suspect]
     Active Substance: ALECTINIB HYDROCHLORIDE
     Indication: Non-small cell lung cancer
     Route: 048
     Dates: start: 20200131

REACTIONS (8)
  - Dyspnoea [Unknown]
  - Constipation [Unknown]
  - Headache [Unknown]
  - Hypoaesthesia [Unknown]
  - Hypertension [Unknown]
  - Weight increased [Unknown]
  - Renal neoplasm [Unknown]
  - Oedema [Unknown]

NARRATIVE: CASE EVENT DATE: 20210807
